FAERS Safety Report 21184397 (Version 1)
Quarter: 2022Q3

REPORT INFORMATION
  Report Type: Spontaneous
  Country: US (occurrence: None)
  Receive Date: 20220808
  Receipt Date: 20220808
  Transmission Date: 20221027
  Serious: No
  Sender: FDA-Public Use
  Company Number: US-VistaPharm, Inc.-VER202206-000501

PATIENT
  Sex: Female

DRUGS (7)
  1. THYQUIDITY [Suspect]
     Active Substance: LEVOTHYROXINE SODIUM
     Indication: Hypothyroidism
     Dosage: 2.5 ML
     Route: 048
     Dates: start: 20220531, end: 20220531
  2. LEVOXYL [Concomitant]
     Active Substance: LEVOTHYROXINE SODIUM
     Indication: Hypothyroidism
     Dosage: 100 MICROGRAMS (MCG)
     Route: 065
     Dates: start: 201903, end: 20220530
  3. LEVOXYL [Concomitant]
     Active Substance: LEVOTHYROXINE SODIUM
     Dosage: HALF A DOSE
     Route: 065
     Dates: start: 20220531, end: 20220531
  4. LEVOXYL [Concomitant]
     Active Substance: LEVOTHYROXINE SODIUM
     Dosage: UNKNOWN
     Route: 065
     Dates: start: 20220601
  5. NADOLOL [Concomitant]
     Active Substance: NADOLOL
     Indication: Product used for unknown indication
     Dosage: 10 MG
     Route: 065
     Dates: start: 202109
  6. NURTEC ODT [Concomitant]
     Active Substance: RIMEGEPANT SULFATE
     Indication: Migraine
     Dosage: AS NEEDED
     Route: 065
     Dates: end: 202203
  7. NURTEC ODT [Concomitant]
     Active Substance: RIMEGEPANT SULFATE
     Dosage: 75 MCG
     Route: 065
     Dates: start: 202203

REACTIONS (3)
  - Hypoaesthesia oral [Recovered/Resolved]
  - Pharyngeal swelling [Recovered/Resolved]
  - Tonsillar hypertrophy [Recovered/Resolved]
